FAERS Safety Report 6380510-0 (Version None)
Quarter: 2009Q3

REPORT INFORMATION
  Report Type: 
  Country: None (occurrence: None)
  Receive Date: 20090929
  Receipt Date: 20090921
  Transmission Date: 20100115
  Serious: Yes (Other)
  Sender: FDA-Public Use
  Company Number: BR-ABBOTT-09P-020-0590580-00

PATIENT
  Sex: Female
  Weight: 64 kg

DRUGS (3)
  1. DEPAKOTE [Suspect]
     Indication: CONVULSION
     Route: 048
     Dates: end: 20090901
  2. DEPAKOTE [Suspect]
     Dates: start: 20090916
  3. GABAPENTIN [Concomitant]
     Indication: CONVULSION

REACTIONS (5)
  - CONVULSION [None]
  - DIZZINESS [None]
  - HEADACHE [None]
  - SKIN DISCOLOURATION [None]
  - SYNCOPE [None]
